FAERS Safety Report 4624651-4 (Version None)
Quarter: 2005Q1

REPORT INFORMATION
  Report Type: 
  Country: None (occurrence: None)
  Receive Date: 20050107
  Receipt Date: 20040913
  Transmission Date: 20050727
  Serious: No
  Sender: FDA-Public Use
  Company Number: 234628K04USA

PATIENT
  Age: 58 Year
  Sex: Female

DRUGS (3)
  1. REBIF [Suspect]
     Indication: MULTIPLE SCLEROSIS
     Dosage: 11 MG, 22 MCG
     Dates: start: 20040101, end: 20040101
  2. REBIF [Suspect]
     Indication: MULTIPLE SCLEROSIS
     Dosage: 11 MG, 22 MCG
     Dates: start: 20040715, end: 20040912
  3. REBIF [Suspect]
     Indication: MULTIPLE SCLEROSIS
     Dosage: 11 MG, 22 MCG
     Dates: start: 20040101

REACTIONS (3)
  - CHEST PAIN [None]
  - DYSPNOEA [None]
  - EMOTIONAL DISTRESS [None]
